FAERS Safety Report 8338047-5 (Version None)
Quarter: 2012Q2

REPORT INFORMATION
  Report Type: 
  Country: None (occurrence: None)
  Receive Date: 20120504
  Receipt Date: 20120430
  Transmission Date: 20120825
  Serious: Yes (Other)
  Sender: FDA-Public Use
  Company Number: US-PFIZER INC-2012106592

PATIENT
  Sex: Female
  Weight: 70.295 kg

DRUGS (4)
  1. EFFEXOR XR [Suspect]
     Indication: DEPRESSION
     Dosage: 150 MG, 2X/DAY
  2. EFFEXOR XR [Suspect]
     Indication: STRESS
     Dosage: 150MG, DAILY
     Dates: end: 20120401
  3. BYETTA [Concomitant]
     Indication: DIABETES MELLITUS
     Dosage: 10 MG, DAILY
  4. VALIUM [Concomitant]
     Dosage: UNK

REACTIONS (8)
  - HALLUCINATION, AUDITORY [None]
  - MEMORY IMPAIRMENT [None]
  - ABNORMAL DREAMS [None]
  - IRRITABILITY [None]
  - NERVOUSNESS [None]
  - DRUG ADMINISTRATION ERROR [None]
  - CRYING [None]
  - HALLUCINATION, VISUAL [None]
